FAERS Safety Report 16578276 (Version 2)
Quarter: 2019Q3

REPORT INFORMATION
  Report Type: Spontaneous
  Country: JP (occurrence: JP)
  Receive Date: 20190716
  Receipt Date: 20190813
  Transmission Date: 20191004
  Serious: Yes (Hospitalization)
  Sender: FDA-Public Use
  Company Number: GXJP2019JP001362

PATIENT
  Age: 11 Year
  Sex: Female

DRUGS (1)
  1. SOMATROPIN BS S.C. INJECTION [Suspect]
     Active Substance: SOMATROPIN
     Indication: DWARFISM
     Dosage: 0.9 MG, UNK
     Route: 058
     Dates: start: 201305

REACTIONS (1)
  - Langerhans^ cell histiocytosis [Unknown]
